FAERS Safety Report 21103486 (Version 1)
Quarter: 2022Q3

REPORT INFORMATION
  Report Type: Spontaneous
  Country: US (occurrence: US)
  Receive Date: 20220720
  Receipt Date: 20220720
  Transmission Date: 20221026
  Serious: Yes (Other)
  Sender: FDA-Public Use
  Company Number: US-CELLTRION INC.-2022US011291

PATIENT

DRUGS (3)
  1. TRUXIMA [Suspect]
     Active Substance: RITUXIMAB-ABBS
     Indication: Haematuria
     Dosage: 700 MG WEEKLY X4
     Dates: start: 20220705
  2. TRUXIMA [Suspect]
     Active Substance: RITUXIMAB-ABBS
     Indication: Glomerulonephritis
     Dosage: 700 MG WEEKLY X4
     Dates: start: 20220712
  3. TRUXIMA [Suspect]
     Active Substance: RITUXIMAB-ABBS
     Indication: Nephrotic syndrome

REACTIONS (4)
  - Glomerulonephritis membranous [Unknown]
  - Nephrotic syndrome [Unknown]
  - Haematuria [Unknown]
  - Off label use [Unknown]
